FAERS Safety Report 8310267 (Version 13)
Quarter: 2013Q2

REPORT INFORMATION
  Report Type: Report from Study
  Country: BE (occurrence: BE)
  Receive Date: 20111223
  Receipt Date: 20130424
  Transmission Date: 20140414
  Serious: Yes (Hospitalization)
  Sender: FDA-Public Use
  Company Number: BE-ROCHE-1019757

PATIENT
  Age: 74 Year
  Sex: Female

DRUGS (11)
  1. VEMURAFENIB [Suspect]
     Indication: METASTATIC MALIGNANT MELANOMA
     Dosage: DATE OF LAST DOSE PRIOR TO SAE: 01 DEC 2011
     Route: 048
     Dates: start: 20111109, end: 20111123
  2. VEMURAFENIB [Interacting]
     Route: 048
     Dates: start: 20111130, end: 20111202
  3. VEMURAFENIB [Interacting]
     Route: 048
     Dates: start: 20111206
  4. ACENOCOUMAROL [Interacting]
     Indication: PRODUCT USED FOR UNKNOWN INDICATION
     Route: 065
     Dates: start: 200204, end: 20111123
  5. PANTOMED [Concomitant]
     Route: 065
     Dates: start: 200908
  6. ALDACTONE [Concomitant]
     Route: 065
     Dates: start: 20111117
  7. LASIX [Concomitant]
     Route: 065
     Dates: start: 201103
  8. CITALOPRAM [Concomitant]
     Route: 065
     Dates: start: 2000
  9. SIMVASTATIN [Concomitant]
     Route: 065
     Dates: start: 2000
  10. ZOPICLONE [Concomitant]
     Route: 065
     Dates: start: 1998
  11. APOCARD RETARD [Concomitant]
     Route: 065
     Dates: start: 2008

REACTIONS (2)
  - Overdose [Recovered/Resolved with Sequelae]
  - Fall [Unknown]
